FAERS Safety Report 4740735-4 (Version None)
Quarter: 2005Q3

REPORT INFORMATION
  Report Type: 
  Country: None (occurrence: None)
  Receive Date: 20050810
  Receipt Date: 20050803
  Transmission Date: 20060218
  Serious: Yes (Death)
  Sender: FDA-Public Use
  Company Number: JP-JNJFOC-20050600327

PATIENT
  Sex: Male

DRUGS (14)
  1. RISPERDAL [Suspect]
     Indication: DELIRIUM
     Route: 048
  2. RISPERDAL [Suspect]
     Indication: PARANOIA
     Route: 048
  3. HALOPERIDOL [Suspect]
     Indication: DELIRIUM
     Dosage: 10 MG DAILY
  4. HALOPERIDOL [Suspect]
  5. HALOPERIDOL [Suspect]
     Dosage: 30 MG DAILY
     Route: 030
  6. HALOPERIDOL [Suspect]
     Route: 030
  7. LORAZEPAM [Concomitant]
     Route: 048
  8. BIPERIDEN HYDROCHLORIDE [Concomitant]
     Route: 048
  9. ITOPRIDE HYDROCHLORIDE [Concomitant]
     Route: 048
  10. MAGNESIUM OXIDE [Concomitant]
     Route: 048
  11. MIANSERIN HYDROCHLORIDE [Concomitant]
     Route: 048
  12. NITRAZEPAM [Concomitant]
     Route: 048
  13. FLUNITRAZEPAM [Concomitant]
     Route: 048
  14. ZOPICLONE [Concomitant]
     Route: 048

REACTIONS (4)
  - ENCEPHALOPATHY [None]
  - PROSTRATION [None]
  - RESTLESSNESS [None]
  - VENTRICULAR FIBRILLATION [None]
